FAERS Safety Report 23447779 (Version 3)
Quarter: 2025Q3

REPORT INFORMATION
  Report Type: Spontaneous
  Country: RU (occurrence: RU)
  Receive Date: 20240126
  Receipt Date: 20250810
  Transmission Date: 20251021
  Serious: Yes (Life-Threatening)
  Sender: ALEXION PHARMACEUTICALS
  Company Number: 2024A018197

PATIENT
  Age: 9 Year
  Sex: Male
  Weight: 40 kg

DRUGS (4)
  1. PULMICORT TURBUHALER [Suspect]
     Active Substance: BUDESONIDE
     Indication: Asthma
     Dosage: 160 MICROLITER, BID
     Dates: start: 20220922, end: 20221227
  2. SPIRIVA RESPIMAT [Concomitant]
     Active Substance: TIOTROPIUM BROMIDE
     Indication: Asthma
     Route: 065
  3. Pulmibud [Concomitant]
     Indication: Asthma
     Dosage: 250 MILLIGRAM, BID
     Route: 065
     Dates: start: 20220927, end: 20221227
  4. TIOTROPIUM BROMIDE MONOHYDRATE [Concomitant]
     Active Substance: TIOTROPIUM BROMIDE MONOHYDRATE
     Indication: Asthma
     Dosage: 18 MICROGRAM, QD
     Dates: start: 20220927, end: 20221227

REACTIONS (3)
  - Asthma [Not Recovered/Not Resolved]
  - Urticaria [Unknown]
  - Drug ineffective [Unknown]
